FAERS Safety Report 5241185-7 (Version None)
Quarter: 2007Q1

REPORT INFORMATION
  Report Type: 
  Country: None (occurrence: None)
  Receive Date: 20070220
  Receipt Date: 20070207
  Transmission Date: 20070707
  Serious: Yes (Other)
  Sender: FDA-Public Use
  Company Number: PHMT2007CA00636

PATIENT
  Age: 45 Year
  Sex: Female

DRUGS (4)
  1. TEGRETOL [Suspect]
     Indication: AFFECTIVE DISORDER
     Dosage: 100 MG, BID
     Route: 048
     Dates: start: 20070101, end: 20070101
  2. LITHIUM CARBONATE [Concomitant]
  3. CLONAZEPAM [Concomitant]
  4. PARIET [Concomitant]

REACTIONS (3)
  - BRUXISM [None]
  - DYSTONIA [None]
  - TRISMUS [None]
